FAERS Safety Report 6955346-X (Version None)
Quarter: 2010Q3

REPORT INFORMATION
  Report Type: 
  Country: None (occurrence: None)
  Receive Date: 20100830
  Receipt Date: 20100819
  Transmission Date: 20110219
  Serious: Yes (Hospitalization, Other)
  Sender: FDA-Public Use
  Company Number: JP-ASTRAZENECA-2010SE29519

PATIENT
  Age: 0 Day
  Sex: Female
  Weight: 2.9 kg

DRUGS (3)
  1. SEROQUEL [Suspect]
     Indication: SCHIZOPHRENIA
     Route: 064
  2. BENZALIN [Suspect]
     Route: 064
  3. GASMOTIN [Suspect]
     Route: 064

REACTIONS (4)
  - DRUG EXPOSURE VIA BREAST MILK [None]
  - DYSPHAGIA [None]
  - GASTRIC VOLVULUS [None]
  - MATERNAL DRUGS AFFECTING FOETUS [None]
